FAERS Safety Report 11390454 (Version 1)
Quarter: 2015Q3

REPORT INFORMATION
  Report Type: Spontaneous
  Country: US (occurrence: US)
  Receive Date: 20150818
  Receipt Date: 20150818
  Transmission Date: 20151125
  Serious: No
  Sender: FDA-Public Use
  Company Number: US-ROCHE-1383767

PATIENT
  Sex: Female

DRUGS (7)
  1. RIBASPHERE [Suspect]
     Active Substance: RIBAVIRIN
     Dosage: IN TWO DIVIDED DOSES.  12 WEEKS THERAPY.
     Route: 048
     Dates: start: 201403
  2. RIBASPHERE [Suspect]
     Active Substance: RIBAVIRIN
     Dosage: IN TWO DIVIDED DOSES.  12 WEEKS THERAPY.
     Route: 048
  3. PEGASYS [Suspect]
     Active Substance: PEGINTERFERON ALFA-2A
     Indication: CHRONIC HEPATITIS C
     Dosage: 7 TO 8 WEEKS THERAPY.
     Route: 065
  4. RIBAVIRIN. [Suspect]
     Active Substance: RIBAVIRIN
     Indication: CHRONIC HEPATITIS C
     Dosage: 7 TO 8 WEEKS THERAPY.
     Route: 065
     Dates: start: 2007
  5. RIBASPHERE [Suspect]
     Active Substance: RIBAVIRIN
     Indication: CHRONIC HEPATITIS C
     Dosage: IN TWO DIVIDED DOSES.  12 WEEKS THERAPY.
     Route: 048
     Dates: start: 20140117
  6. PEGASYS [Suspect]
     Active Substance: PEGINTERFERON ALFA-2A
     Dosage: 12 WEEKS THERAPY.
     Route: 058
     Dates: start: 20140117, end: 20140410
  7. RIBASPHERE [Suspect]
     Active Substance: RIBAVIRIN
     Dosage: IN TWO DIVIDED DOSES.  12 WEEKS THERAPY.
     Route: 048
     Dates: start: 201403

REACTIONS (6)
  - Arthralgia [Unknown]
  - Anaemia [Unknown]
  - Dyspnoea [Unknown]
  - Alopecia [Unknown]
  - Bone pain [Unknown]
  - Fatigue [Unknown]
